FAERS Safety Report 24178379 (Version 1)
Quarter: 2024Q3

REPORT INFORMATION
  Report Type: Spontaneous
  Country: PT (occurrence: PT)
  Receive Date: 20240806
  Receipt Date: 20240806
  Transmission Date: 20241016
  Serious: Yes (Disabling)
  Sender: GILEAD
  Company Number: None

PATIENT
  Age: 75 Year
  Sex: Male

DRUGS (11)
  1. VEKLURY [Suspect]
     Active Substance: REMDESIVIR
     Indication: COVID-19 pneumonia
     Dosage: D1 - 200 MG  D2- 100 MG
     Route: 042
     Dates: start: 20210218, end: 20210220
  2. ARIPIPRAZOLE [Concomitant]
     Active Substance: ARIPIPRAZOLE
     Dosage: 10 MG, QD
     Dates: start: 20210217, end: 20210220
  3. VALPROIC ACID [Concomitant]
     Active Substance: VALPROIC ACID
     Dosage: 750 MG, QD
     Route: 048
     Dates: start: 20210219
  4. BIPERIDEN [Concomitant]
     Active Substance: BIPERIDEN
     Dosage: 2.5 MG
     Dates: start: 20210220
  5. QUETIAPINE [Concomitant]
     Active Substance: QUETIAPINE
     Dosage: 25 MG, PRN, SOS
     Route: 048
     Dates: start: 20210217, end: 20210219
  6. OLANZAPINE [Concomitant]
     Active Substance: OLANZAPINE
     Dosage: 5 MG, QD; 17 A 19 2,5 MG/DIA, 19 A 20 5 MG/DIA
     Dates: start: 20210217, end: 20210220
  7. METAMIZOLE MAGNESIUM [Concomitant]
     Active Substance: METAMIZOLE MAGNESIUM
     Dosage: SOS, 575 MG, PRN
     Route: 048
     Dates: start: 20210217
  8. OXAZEPAM [Concomitant]
     Active Substance: OXAZEPAM
     Dosage: 45 MG, QD
     Route: 048
     Dates: start: 20210219
  9. ACETAMINOPHEN [Concomitant]
     Active Substance: ACETAMINOPHEN
     Dosage: SOS, 500 MG, PRN
     Route: 048
     Dates: start: 20210217
  10. ENOXAPARIN SODIUM [Concomitant]
     Active Substance: ENOXAPARIN SODIUM
     Dosage: 40 MG, QD
     Dates: start: 20210217
  11. HALOPERIDOL [Concomitant]
     Active Substance: HALOPERIDOL
     Dosage: SOS, 5 MG, PRN
     Route: 030
     Dates: start: 20210219

REACTIONS (3)
  - Tremor [Recovering/Resolving]
  - Dysarthria [Recovering/Resolving]
  - Dyskinesia [Recovering/Resolving]

NARRATIVE: CASE EVENT DATE: 20210219
